FAERS Safety Report 9818556 (Version 1)
Quarter: 2014Q1

REPORT INFORMATION
  Report Type: Spontaneous
  Country: US (occurrence: US)
  Receive Date: 20140115
  Receipt Date: 20140115
  Transmission Date: 20141002
  Serious: Yes (Death)
  Sender: FDA-Public Use
  Company Number: US-BAYER-2014-004410

PATIENT
  Age: 60 Year
  Sex: Male

DRUGS (6)
  1. METFORMIN [Suspect]
     Route: 048
  2. VARDENAFIL (EXTENDED RELEASE) [Suspect]
     Route: 048
  3. METOPROLOL [Suspect]
     Route: 048
  4. AMLODIPINE W/VALSARTAN [Suspect]
     Route: 048
  5. GLIMEPIRIDE [Suspect]
     Route: 048
  6. ETHANOL [Suspect]
     Route: 048

REACTIONS (1)
  - Toxicity to various agents [Fatal]
